FAERS Safety Report 19593532 (Version 1)
Quarter: 2021Q3

REPORT INFORMATION
  Report Type: Report from Study
  Country: IN (occurrence: IN)
  Receive Date: 20210722
  Receipt Date: 20210722
  Transmission Date: 20211014
  Serious: Yes (Death, Hospitalization)
  Sender: FDA-Public Use
  Company Number: NVSC2021IN165721

PATIENT
  Age: 67 Year
  Sex: Male

DRUGS (1)
  1. MYFORTIC [Suspect]
     Active Substance: MYCOPHENOLATE SODIUM
     Indication: RENAL DISORDER
     Dosage: 180 MG, BID
     Route: 065
     Dates: start: 20080623

REACTIONS (2)
  - Renal failure [Not Recovered/Not Resolved]
  - Myocardial infarction [Fatal]

NARRATIVE: CASE EVENT DATE: 20210518
